FAERS Safety Report 15632774 (Version 5)
Quarter: 2019Q1

REPORT INFORMATION
  Report Type: Report from Study
  Country: US (occurrence: US)
  Receive Date: 20181119
  Receipt Date: 20190308
  Transmission Date: 20190417
  Serious: Yes (Other)
  Sender: FDA-Public Use
  Company Number: US-REGENERON PHARMACEUTICALS, INC.-2018-43919

PATIENT

DRUGS (18)
  1. INO-5401 [Suspect]
     Active Substance: INVESTIGATIONAL PRODUCT
     Indication: GLIOBLASTOMA
     Dosage: 10 MG, EVERY 3 WEEKS TIMES 4 DOSE; THEN EVERY 9 WEEKS UNTIL DISEASE PROGRESSION
     Route: 030
     Dates: start: 20180918, end: 20180918
  2. KEPPRA [Concomitant]
     Active Substance: LEVETIRACETAM
     Indication: PROPHYLAXIS
     Dosage: 500 MG, 2 IN 1 D
     Route: 048
     Dates: start: 20180813, end: 20181001
  3. CEMIPLIMAB [Suspect]
     Active Substance: CEMIPLIMAB
     Dosage: 350 MG, EVERY 3 WEEKS UNTIL DISEASE PROGRESSION
     Route: 042
     Dates: start: 20181010, end: 20181010
  4. INO-9012 [Suspect]
     Active Substance: INVESTIGATIONAL PRODUCT
     Dosage: 10 MG, EVERY 3 WEEKS TIMES 4 DOSE; THEN EVERY 9 WEEKS UNTIL DISEASE PROGRESSION
     Route: 030
     Dates: start: 20181010, end: 20181010
  5. KEPPRA [Concomitant]
     Active Substance: LEVETIRACETAM
     Dosage: 1000 MG, 2 IN 1 D
     Route: 048
     Dates: start: 20181002
  6. LEVOTHYROXINE. [Concomitant]
     Active Substance: LEVOTHYROXINE
     Dosage: 25 MCG, 1 IN 1 D
     Route: 048
     Dates: start: 20181003
  7. TEMOZOLOMIDE. [Concomitant]
     Active Substance: TEMOZOLOMIDE
     Indication: GLIOBLASTOMA
     Dosage: EACH NIGHT AT 75 MG/M2
     Route: 048
     Dates: start: 20180910, end: 20181001
  8. RADIOTHERAPY [Concomitant]
     Active Substance: RADIATION THERAPY
     Indication: GLIOBLASTOMA
     Dosage: 2.67 GY
     Dates: start: 20180925, end: 20181001
  9. TEMOZOLOMIDE. [Concomitant]
     Active Substance: TEMOZOLOMIDE
     Dosage: EACH NIGHT AT 75 MG/M2
     Route: 048
     Dates: start: 20181003, end: 20181015
  10. ONDANSETROM                        /00955301/ [Concomitant]
     Active Substance: ONDANSETRON
     Indication: PROPHYLAXIS OF NAUSEA AND VOMITING
     Dosage: 8 MG, 1 IN 1 D
     Route: 048
     Dates: start: 20180925
  11. DOCUSATE SODIUM. [Concomitant]
     Active Substance: DOCUSATE SODIUM
     Indication: CONSTIPATION
     Dosage: 100 MG, AS NECESSARY
     Route: 048
     Dates: start: 20181002
  12. CEMIPLIMAB [Suspect]
     Active Substance: CEMIPLIMAB
     Indication: GLIOBLASTOMA
     Dosage: 350 MG, EVERY 3 WEEKS UNTIL DISEASE PROGRESSION
     Route: 042
     Dates: start: 20180918, end: 20180918
  13. LEVOTHYROXINE. [Concomitant]
     Active Substance: LEVOTHYROXINE
     Indication: HYPOTHYROIDISM
     Dosage: 50 MCG, 1 IN 1 D
     Route: 048
     Dates: start: 20180813, end: 20181002
  14. RADIOTHERAPY [Concomitant]
     Active Substance: RADIATION THERAPY
     Dosage: 2.67 GY
     Dates: start: 20181003, end: 20181016
  15. METOPROLOL TARTRATE. [Concomitant]
     Active Substance: METOPROLOL TARTRATE
     Indication: SUPRAVENTRICULAR TACHYCARDIA
     Dosage: 25 MG, 2 IN 1 D
     Route: 048
     Dates: start: 20181002
  16. INO-5401 [Suspect]
     Active Substance: INVESTIGATIONAL PRODUCT
     Dosage: 10 MG, EVERY 3 WEEKS TIMES 4 DOSE; THEN EVERY 9 WEEKS UNTIL DISEASE PROGRESSION
     Route: 030
     Dates: start: 20181010, end: 20181010
  17. INO-9012 [Suspect]
     Active Substance: INVESTIGATIONAL PRODUCT
     Indication: GLIOBLASTOMA
     Dosage: 10 MG, EVERY 3 WEEKS TIMES 4 DOSE; THEN EVERY 9 WEEKS UNTIL DISEASE PROGRESSION
     Route: 030
     Dates: start: 20180918, end: 20180918
  18. POLYETHYLENE GLYCOL [Concomitant]
     Active Substance: POLYETHYLENE GLYCOLS
     Indication: CONSTIPATION
     Dosage: 17 MG, AS NECESSARY
     Route: 048
     Dates: start: 20181002

REACTIONS (1)
  - Tumour inflammation [Recovered/Resolved]

NARRATIVE: CASE EVENT DATE: 20181015
